FAERS Safety Report 13640018 (Version 1)
Quarter: 2017Q2

REPORT INFORMATION
  Report Type: Spontaneous
  Country: US (occurrence: US)
  Receive Date: 20170609
  Receipt Date: 20170609
  Transmission Date: 20170830
  Serious: No
  Sender: FDA-Public Use
  Company Number: US-ROCHE-1085864

PATIENT
  Sex: Female

DRUGS (3)
  1. KLONOPIN [Suspect]
     Active Substance: CLONAZEPAM
     Indication: ANXIETY
  2. NARDIL [Concomitant]
     Active Substance: PHENELZINE SULFATE
     Indication: ANXIETY
  3. GENTEAL LUBRICANT EYE GEL [Concomitant]
     Indication: DRY EYE

REACTIONS (3)
  - Fatigue [Unknown]
  - Ocular discomfort [Unknown]
  - Dry eye [Unknown]
